FAERS Safety Report 7205830-9 (Version None)
Quarter: 2010Q4

REPORT INFORMATION
  Report Type: 
  Country: None (occurrence: None)
  Receive Date: 20101231
  Receipt Date: 20101222
  Transmission Date: 20110411
  Serious: Yes (Other)
  Sender: FDA-Public Use
  Company Number: US-PFIZER INC-2010067435

PATIENT
  Sex: Female

DRUGS (7)
  1. PRISTIQ [Suspect]
     Dosage: 50 MG, 1X/DAY
     Route: 048
     Dates: start: 20100501
  2. CELEBREX [Suspect]
     Indication: ARTHRITIS
     Dosage: 200 MG, DAILY
     Route: 048
  3. ACETYLSALICYLIC ACID [Concomitant]
     Dosage: UNK
  4. EXTRA STRENGTH TYLENOL [Concomitant]
     Dosage: UNK
  5. HYDROCHLOROTHIAZIDE [Concomitant]
     Indication: HYPERTENSION
     Dosage: UNK
  6. LISINOPRIL [Concomitant]
     Indication: HYPERTENSION
     Dosage: UNK
  7. LOVASTATIN [Concomitant]
     Indication: BLOOD CHOLESTEROL INCREASED
     Dosage: UNK

REACTIONS (6)
  - DYSURIA [None]
  - FALL [None]
  - HEARING IMPAIRED [None]
  - INSOMNIA [None]
  - MYALGIA [None]
  - RENAL DISORDER [None]
